FAERS Safety Report 5775426-4 (Version None)
Quarter: 2008Q2

REPORT INFORMATION
  Report Type: 
  Country: None (occurrence: None)
  Receive Date: 20080617
  Receipt Date: 20080606
  Transmission Date: 20081010
  Serious: Yes (Death)
  Sender: FDA-Public Use
  Company Number: US-ROCHE-568831

PATIENT
  Sex: Male
  Weight: 72.6 kg

DRUGS (4)
  1. XELODA [Suspect]
     Indication: COLON CANCER
     Dosage: FREQUENCY: IN MORNING AND IN EVENING
     Route: 048
     Dates: start: 20051001, end: 20070601
  2. OXALIPLATIN [Concomitant]
     Indication: COLON CANCER
     Dosage: DOSE: ONE DOSE EVERY TWO WEEKS.
     Dates: start: 20051001, end: 20060201
  3. IRINOTECAN HCL [Concomitant]
     Indication: COLON CANCER
     Dates: start: 20060701, end: 20070601
  4. AVASTIN [Concomitant]
     Indication: COLON CANCER

REACTIONS (1)
  - DISEASE PROGRESSION [None]
